FAERS Safety Report 8636255 (Version 3)
Quarter: 2014Q4

REPORT INFORMATION
  Report Type: Report from Study
  Country: JP (occurrence: JP)
  Receive Date: 20120626
  Receipt Date: 20141124
  Transmission Date: 20150529
  Serious: Yes (Other)
  Sender: FDA-Public Use
  Company Number: JP-ROCHE-1077277

PATIENT

DRUGS (3)
  1. BEVACIZUMAB [Suspect]
     Active Substance: BEVACIZUMAB
     Indication: NON-SMALL CELL LUNG CANCER
     Dosage: DAY 1 OF A 21-DAY CYCLE
     Route: 042
  2. DEXAMETHASONE. [Concomitant]
     Active Substance: DEXAMETHASONE
     Indication: PREMEDICATION
     Route: 042
  3. DOCETAXEL. [Suspect]
     Active Substance: DOCETAXEL
     Indication: NON-SMALL CELL LUNG CANCER
     Dosage: OVER 60 MIN ON DAY 1 OF A 21-DAY CYCLE
     Route: 042

REACTIONS (9)
  - Febrile neutropenia [Unknown]
  - Haemorrhage [Unknown]
  - Bone marrow failure [Unknown]
  - Leukopenia [Unknown]
  - Anaemia [Unknown]
  - Palmar-plantar erythrodysaesthesia syndrome [Unknown]
  - Infection [Unknown]
  - Proteinuria [Unknown]
  - Neutropenia [Unknown]
